FAERS Safety Report 6158560-9 (Version None)
Quarter: 2009Q2

REPORT INFORMATION
  Report Type: 
  Country: None (occurrence: None)
  Receive Date: 20090417
  Receipt Date: 20090415
  Transmission Date: 20091009
  Serious: Yes (Hospitalization)
  Sender: FDA-Public Use
  Company Number: FR-AMGEN-UK313211

PATIENT
  Sex: Female

DRUGS (12)
  1. PANITUMUMAB [Suspect]
     Indication: COLORECTAL CANCER
     Route: 042
     Dates: start: 20080509, end: 20080718
  2. IRINOTECAN HCL [Suspect]
  3. LEUCOVORIN CALCIUM [Suspect]
  4. FLUOROURACIL [Suspect]
  5. ESOMEPRAZOLE [Concomitant]
     Route: 048
     Dates: start: 20080511
  6. RISORDAN [Concomitant]
     Route: 042
     Dates: start: 20080511
  7. FERROUS SULFATE TAB [Concomitant]
     Route: 048
     Dates: start: 20080512
  8. IRON [Concomitant]
     Route: 048
     Dates: start: 20050101
  9. TANAKAN [Concomitant]
     Route: 048
  10. PERINDOPRIL ERBUMINE [Concomitant]
     Route: 048
     Dates: start: 20080513
  11. OMEPRAZOLE [Concomitant]
     Route: 048
     Dates: start: 20080513
  12. SPASFON [Concomitant]
     Route: 042
     Dates: start: 20080513

REACTIONS (5)
  - ACUTE CORONARY SYNDROME [None]
  - CHEST PAIN [None]
  - FEBRILE NEUTROPENIA [None]
  - HAEMOGLOBIN DECREASED [None]
  - PLATELET COUNT INCREASED [None]
